FAERS Safety Report 4281839-2 (Version None)
Quarter: 2004Q1

REPORT INFORMATION
  Report Type: 
  Country: None (occurrence: None)
  Receive Date: 20040129
  Receipt Date: 20040122
  Transmission Date: 20041129
  Serious: Yes (Hospitalization)
  Sender: FDA-Public Use
  Company Number: WAES 0401USA01776

PATIENT
  Age: 30 Year
  Sex: Male

DRUGS (5)
  1. ASPIRIN [Concomitant]
  2. GEMFIBROZIL [Suspect]
  3. INSULIN [Concomitant]
     Indication: DIABETES MELLITUS INSULIN-DEPENDENT
  4. NPH ILETIN II [Concomitant]
     Indication: DIABETES MELLITUS INSULIN-DEPENDENT
  5. PRINIVIL [Suspect]
     Indication: HYPERTENSION
     Route: 048

REACTIONS (7)
  - BLOOD GLUCOSE DECREASED [None]
  - BLOOD SODIUM DECREASED [None]
  - HAEMATURIA [None]
  - HYPOVOLAEMIA [None]
  - RENAL FAILURE ACUTE [None]
  - RHABDOMYOLYSIS [None]
  - TENDERNESS [None]
